FAERS Safety Report 14351669 (Version 1)
Quarter: 2018Q1

REPORT INFORMATION
  Report Type: Spontaneous
  Country: US (occurrence: US)
  Receive Date: 20180104
  Receipt Date: 20180104
  Transmission Date: 20180509
  Serious: Yes (Death)
  Sender: FDA-Public Use
  Company Number: None

PATIENT
  Age: 38 Year
  Sex: Female
  Weight: 129.6 kg

DRUGS (1)
  1. VANCOMYCIN [Suspect]
     Active Substance: VANCOMYCIN
     Indication: PYREXIA
     Route: 042
     Dates: start: 20171214, end: 20171214

REACTIONS (7)
  - Facial paralysis [None]
  - Blood pressure increased [None]
  - Heart rate increased [None]
  - Resuscitation [None]
  - Dyspnoea [None]
  - Loss of consciousness [None]
  - Seizure [None]

NARRATIVE: CASE EVENT DATE: 20171214
